FAERS Safety Report 4413768-5 (Version None)
Quarter: 2004Q3

REPORT INFORMATION
  Report Type: 
  Country: None (occurrence: None)
  Receive Date: 20040728
  Receipt Date: 20040715
  Transmission Date: 20050211
  Serious: Yes (Death)
  Sender: FDA-Public Use
  Company Number: USA-2004-0016014

PATIENT
  Sex: Male

DRUGS (3)
  1. OXYCONTIN [Suspect]
  2. VALIUM [Suspect]
  3. COCAINE (COCAINE) [Suspect]

REACTIONS (1)
  - DROWNING [None]
